FAERS Safety Report 8241140-9 (Version None)
Quarter: 2012Q1

REPORT INFORMATION
  Report Type: 
  Country: None (occurrence: None)
  Receive Date: 20120328
  Receipt Date: 20120322
  Transmission Date: 20120608
  Serious: Yes (Life-Threatening, Hospitalization)
  Sender: FDA-Public Use
  Company Number: ES-PFIZER INC-2010057017

PATIENT
  Age: 63 Year
  Sex: Male

DRUGS (5)
  1. ZYVOX [Suspect]
     Indication: DEVICE RELATED INFECTION
     Dosage: UNK
  2. ENALAPRIL [Concomitant]
     Indication: HYPERTENSION
     Dosage: 20 MG, 2X/DAY
     Route: 048
     Dates: start: 20040429
  3. MANIDON - SLOW RELEASE [Concomitant]
     Indication: HYPERTENSION
     Dosage: UNK
     Route: 048
     Dates: start: 20050819
  4. ZYVOX [Suspect]
     Indication: POSTOPERATIVE WOUND INFECTION
     Dosage: 600 MG, 2X/DAY
     Route: 048
     Dates: start: 20091115, end: 20100403
  5. OMEPRAZOLE [Concomitant]
     Indication: PROPHYLAXIS AGAINST GASTROINTESTINAL ULCER
     Dosage: 20 MG, 1X/DAY
     Route: 048
     Dates: start: 20050819

REACTIONS (5)
  - RHABDOMYOLYSIS [None]
  - ACUTE PULMONARY OEDEMA [None]
  - SIDEROBLASTIC ANAEMIA [None]
  - LACTIC ACIDOSIS [None]
  - ACUTE CORONARY SYNDROME [None]
